FAERS Safety Report 4274594-3 (Version None)
Quarter: 2004Q1

REPORT INFORMATION
  Report Type: 
  Country: None (occurrence: None)
  Receive Date: 20040120
  Receipt Date: 20040120
  Transmission Date: 20041129
  Serious: Yes (Hospitalization)
  Sender: FDA-Public Use
  Company Number: None

PATIENT
  Age: 69 Year
  Sex: Female
  Weight: 68.0396 kg

DRUGS (7)
  1. FEMARA [Suspect]
     Indication: BREAST CANCER METASTATIC
     Dosage: 2.5 MG PO QD
     Route: 048
     Dates: start: 20031121
  2. TARCEVA [Suspect]
     Dosage: 150 MG PO QD
     Route: 048
     Dates: start: 20031121
  3. INDERAL [Concomitant]
  4. DARVOCET [Concomitant]
  5. SUPPLEMENTAL VITS [Concomitant]
  6. ZOMETA [Concomitant]
  7. SYNTHROID [Concomitant]

REACTIONS (8)
  - ABDOMINAL DISTENSION [None]
  - ANOREXIA [None]
  - ASTHENIA [None]
  - BREAST CANCER [None]
  - EYELID PTOSIS [None]
  - FLUID RETENTION [None]
  - HEPATOMEGALY [None]
  - MALIGNANT NEOPLASM PROGRESSION [None]
